FAERS Safety Report 10043264 (Version 3)
Quarter: 2014Q2

REPORT INFORMATION
  Report Type: Spontaneous
  Country: CA (occurrence: CA)
  Receive Date: 20140328
  Receipt Date: 20140409
  Transmission Date: 20141212
  Serious: Yes (Other)
  Sender: FDA-Public Use
  Company Number: CA-BEH-2014041121

PATIENT
  Age: 50 Year
  Sex: Female

DRUGS (3)
  1. HIZENTRA [Suspect]
     Dosage: OVER 2 CONSECUTIVE DAYS; 2 SITES/DAY
     Route: 058
     Dates: start: 20140123
  2. HIZENTRA [Suspect]
     Indication: PRIMARY IMMUNODEFICIENCY SYNDROME
     Dosage: 2 SITES
     Route: 058
     Dates: start: 20140305, end: 20140305
  3. HIZENTRA [Suspect]
     Dosage: IN 3 SITES WITH 4G PER SITE
     Route: 058

REACTIONS (4)
  - Bone pain [Recovering/Resolving]
  - Mobility decreased [Unknown]
  - Dysstasia [Unknown]
  - Activities of daily living impaired [Unknown]
